FAERS Safety Report 4693293-7 (Version None)
Quarter: 2005Q2

REPORT INFORMATION
  Report Type: 
  Country: None (occurrence: None)
  Receive Date: 20050617
  Receipt Date: 20050511
  Transmission Date: 20051028
  Serious: Yes (Hospitalization, Other)
  Sender: FDA-Public Use
  Company Number: 2005JP000960

PATIENT
  Age: 14 Year
  Sex: Male
  Weight: 55 kg

DRUGS (5)
  1. CEFAMEZIN [Suspect]
     Indication: GASTROENTERITIS
     Dosage: 1G PER DAY
     Route: 042
     Dates: start: 20050413, end: 20050414
  2. ALLERGY MEDICATION [Concomitant]
  3. BUSCOPAN [Concomitant]
     Route: 065
     Dates: start: 20050413
  4. BIOFERMIN [Concomitant]
     Dosage: 1G UNKNOWN
     Route: 048
     Dates: start: 20050413, end: 20050413
  5. VOLTAREN [Concomitant]
     Dosage: 25MG UNKNOWN
     Route: 065
     Dates: start: 20050413, end: 20050413

REACTIONS (3)
  - BLOOD PRESSURE DECREASED [None]
  - DRUG HYPERSENSITIVITY [None]
  - FEELING ABNORMAL [None]
